FAERS Safety Report 6826850-X (Version None)
Quarter: 2010Q3

REPORT INFORMATION
  Report Type: 
  Country: None (occurrence: None)
  Receive Date: 20100709
  Receipt Date: 20100630
  Transmission Date: 20110219
  Serious: Yes (Hospitalization)
  Sender: FDA-Public Use
  Company Number: SK-ROCHE-712742

PATIENT
  Sex: Female

DRUGS (5)
  1. TRASTUZUMAB [Suspect]
     Indication: BREAST CANCER
     Dosage: LOADING DOSE, FORM NOT PROVIDED
     Route: 042
     Dates: start: 20091012
  2. TRASTUZUMAB [Suspect]
     Dosage: MAINTAINENCE DOSE, FREQUENCY: WEEKLY
     Route: 042
  3. LAPATINIB [Suspect]
     Indication: BREAST CANCER
     Dosage: FORM:UNSPECIFIED, FREQUENCY:PER DAY
     Route: 048
     Dates: start: 20100215
  4. PACLITAXEL [Suspect]
     Indication: BREAST CANCER
     Dosage: FREQUENCY:WEEKLY
     Route: 042
     Dates: start: 20091012
  5. BISOPROLOL FUMARATE [Concomitant]

REACTIONS (1)
  - ATRIAL FIBRILLATION [None]
